FAERS Safety Report 12521990 (Version 1)
Quarter: 2016Q3

REPORT INFORMATION
  Report Type: Spontaneous
  Country: PL (occurrence: PL)
  Receive Date: 20160701
  Receipt Date: 20160701
  Transmission Date: 20161109
  Serious: Yes (Hospitalization)
  Sender: FDA-Public Use
  Company Number: PL-ASTELLAS-2016US025086

PATIENT
  Age: 41 Year
  Sex: Female

DRUGS (1)
  1. PROTOPIC [Suspect]
     Active Substance: TACROLIMUS
     Indication: EYE INFLAMMATION
     Dosage: UNK UNK, ONCE DAILY
     Route: 061
     Dates: start: 20160401, end: 20160423

REACTIONS (3)
  - Erythema [Recovered/Resolved with Sequelae]
  - Off label use [Unknown]
  - Burning sensation [Recovered/Resolved with Sequelae]

NARRATIVE: CASE EVENT DATE: 20160401
